FAERS Safety Report 24183385 (Version 1)
Quarter: 2024Q3

REPORT INFORMATION
  Report Type: Spontaneous
  Country: IN (occurrence: IN)
  Receive Date: 20240807
  Receipt Date: 20240807
  Transmission Date: 20241016
  Serious: Yes (Death, Life-Threatening)
  Sender: MYLAN
  Company Number: IN-MYLANLABS-2024M1072208

PATIENT
  Age: 10 Month
  Sex: Female

DRUGS (6)
  1. HEPARIN [Suspect]
     Active Substance: HEPARIN SODIUM
     Indication: Kawasaki^s disease
     Dosage: UNK
     Route: 065
  2. HEPARIN [Suspect]
     Active Substance: HEPARIN SODIUM
     Indication: Aneurysm
  3. ALTEPLASE [Suspect]
     Active Substance: ALTEPLASE
     Indication: Aneurysm
     Dosage: UNK
     Route: 065
  4. ALTEPLASE [Suspect]
     Active Substance: ALTEPLASE
     Indication: Kawasaki^s disease
  5. HUMAN IMMUNOGLOBULIN G [Suspect]
     Active Substance: HUMAN IMMUNOGLOBULIN G
     Indication: Kawasaki^s disease
     Dosage: UNK
     Route: 042
  6. IMMUNE GLOBULIN NOS [Suspect]
     Active Substance: IMMUNE GLOBULIN NOS
     Indication: Aneurysm

REACTIONS (1)
  - Drug ineffective [Fatal]
